FAERS Safety Report 7037016-5 (Version None)
Quarter: 2010Q4

REPORT INFORMATION
  Report Type: 
  Country: None (occurrence: None)
  Receive Date: 20101011
  Receipt Date: 20100928
  Transmission Date: 20110411
  Serious: No
  Sender: FDA-Public Use
  Company Number: NZ-ELI_LILLY_AND_COMPANY-NZ201009007363

PATIENT
  Age: 42 Year
  Sex: Female

DRUGS (4)
  1. ZYPREXA [Suspect]
     Indication: BIPOLAR DISORDER
     Dosage: 20 MG, DAILY (1/D)
     Route: 048
     Dates: start: 20090701, end: 20100701
  2. ZYPREXA [Suspect]
     Dosage: 15 MG, DAILY (1/D)
     Route: 048
     Dates: start: 20100701
  3. ZYPREXA [Suspect]
     Dosage: 10 MG, DAILY (1/D)
     Route: 048
  4. LITHIUM [Concomitant]
     Indication: BIPOLAR DISORDER
     Dosage: 750 MG, UNK

REACTIONS (2)
  - EXTRAPYRAMIDAL DISORDER [None]
  - MENSTRUATION IRREGULAR [None]
